FAERS Safety Report 12708793 (Version 1)
Quarter: 2016Q3

REPORT INFORMATION
  Report Type: Report from Study
  Country: US (occurrence: US)
  Receive Date: 20160901
  Receipt Date: 20160901
  Transmission Date: 20161109
  Serious: Yes (Other)
  Sender: FDA-Public Use
  Company Number: US-GILEAD-2016-0226761

PATIENT
  Age: 57 Year
  Sex: Male
  Weight: 93.42 kg

DRUGS (1)
  1. LEDIPASVIR/SOFOSBUVIR [Suspect]
     Active Substance: LEDIPASVIR\SOFOSBUVIR
     Indication: CHRONIC HEPATITIS C
     Dosage: 1 DF, QHS
     Route: 048
     Dates: start: 20160712

REACTIONS (3)
  - Vision blurred [Recovered/Resolved]
  - Cataract [Unknown]
  - Product use issue [Unknown]

NARRATIVE: CASE EVENT DATE: 2016
